FAERS Safety Report 13965082 (Version 1)
Quarter: 2017Q3

REPORT INFORMATION
  Report Type: Spontaneous
  Country: US (occurrence: US)
  Receive Date: 20170913
  Receipt Date: 20170913
  Transmission Date: 20171128
  Serious: No
  Sender: FDA-Public Use
  Company Number: US-PERRIGO-16US020242

PATIENT
  Sex: Female

DRUGS (1)
  1. EVAMIST [Suspect]
     Active Substance: ESTRADIOL
     Indication: PRODUCT USED FOR UNKNOWN INDICATION
     Dosage: 7.65 MG, SINGLE
     Route: 062
     Dates: start: 201609, end: 201609

REACTIONS (3)
  - Drug ineffective [Unknown]
  - Breast swelling [Not Recovered/Not Resolved]
  - Nipple swelling [Not Recovered/Not Resolved]

NARRATIVE: CASE EVENT DATE: 201609
